FAERS Safety Report 9997952 (Version 1)
Quarter: 2014Q1

REPORT INFORMATION
  Report Type: Spontaneous
  Country: US (occurrence: US)
  Receive Date: 20140311
  Receipt Date: 20140311
  Transmission Date: 20141002
  Serious: Yes (Other)
  Sender: FDA-Public Use
  Company Number: US-ROXANE LABORATORIES, INC.-2014-RO-00365RO

PATIENT
  Age: 32 Year
  Sex: Male

DRUGS (1)
  1. PREDNISONE [Suspect]
     Indication: ERYTHEMA ANNULARE
     Dosage: 80 MG
     Route: 065

REACTIONS (4)
  - Leukocytosis [Unknown]
  - Neutrophilia [Unknown]
  - Blood immunoglobulin G decreased [Unknown]
  - Eosinophilia [Unknown]
